FAERS Safety Report 8388176-5 (Version None)
Quarter: 2012Q2

REPORT INFORMATION
  Report Type: 
  Country: None (occurrence: None)
  Receive Date: 20120525
  Receipt Date: 20120514
  Transmission Date: 20120825
  Serious: Yes (Other)
  Sender: FDA-Public Use
  Company Number: US-JNJFOC-20120513636

PATIENT
  Sex: Female
  Weight: 81.65 kg

DRUGS (15)
  1. ZANAFLEX [Concomitant]
     Indication: MUSCLE SPASMS
     Route: 048
  2. PREDNISONE TAB [Concomitant]
     Indication: RHEUMATOID ARTHRITIS
     Route: 048
  3. GABAPENTIN [Concomitant]
     Indication: HERPES ZOSTER
     Route: 048
  4. ACTONEL [Concomitant]
     Indication: OSTEOPOROSIS PROPHYLAXIS
     Route: 048
  5. ACYCLOVIR [Concomitant]
     Indication: HERPES ZOSTER
     Route: 048
  6. CALCIUM [Concomitant]
     Indication: PROPHYLAXIS
     Route: 048
  7. VITAMIN B3 [Concomitant]
     Indication: PROPHYLAXIS
     Route: 048
  8. REMICADE [Suspect]
     Indication: RHEUMATOID ARTHRITIS
     Route: 042
     Dates: start: 20120409
  9. OMEPRAZOLE [Concomitant]
     Indication: GASTRIC DISORDER
     Route: 048
  10. FISH OIL [Concomitant]
     Indication: PROPHYLAXIS
     Route: 048
  11. ASPIRIN [Concomitant]
     Indication: PROPHYLAXIS
     Route: 048
  12. METHOTREXATE [Concomitant]
     Indication: RHEUMATOID ARTHRITIS
     Route: 048
  13. LYSINE [Concomitant]
     Indication: ORAL DISORDER
     Route: 048
  14. VITAMIN C [Concomitant]
     Indication: PROPHYLAXIS
     Route: 048
  15. BENADRYL [Concomitant]
     Indication: PRURITUS
     Route: 048
     Dates: start: 20110101

REACTIONS (5)
  - EPISTAXIS [None]
  - HYPOKINESIA [None]
  - FATIGUE [None]
  - HYPERSOMNIA [None]
  - PULMONARY CONGESTION [None]
